FAERS Safety Report 15930291 (Version 6)
Quarter: 2021Q1

REPORT INFORMATION
  Report Type: Report from Study
  Country: JP (occurrence: JP)
  Receive Date: 20190207
  Receipt Date: 20210304
  Transmission Date: 20210419
  Serious: Yes (Other)
  Sender: FDA-Public Use
  Company Number: JP-BRISTOL-MYERS SQUIBB COMPANY-BMS-2017-061484

PATIENT
  Age: 27 Year
  Sex: Male
  Weight: 72.3 kg

DRUGS (1)
  1. NIVOLUMAB [Suspect]
     Active Substance: NIVOLUMAB
     Indication: HODGKIN^S DISEASE
     Dosage: 3 MG/KG, UNK
     Route: 041
     Dates: start: 20170316, end: 20170831

REACTIONS (9)
  - Chronic inflammatory demyelinating polyradiculoneuropathy [Recovered/Resolved with Sequelae]
  - Hepatic function abnormal [Recovered/Resolved]
  - Peripheral motor neuropathy [Recovering/Resolving]
  - Pyrexia [Recovered/Resolved]
  - Peroneal nerve palsy [Recovering/Resolving]
  - Peripheral sensory neuropathy [Recovering/Resolving]
  - Autoimmune hypothyroidism [Recovered/Resolved]
  - Engraftment syndrome [Unknown]
  - Thyroid function test abnormal [Unknown]

NARRATIVE: CASE EVENT DATE: 2017
